FAERS Safety Report 7796774-2 (Version None)
Quarter: 2011Q4

REPORT INFORMATION
  Report Type: 
  Country: None (occurrence: None)
  Receive Date: 20111003
  Receipt Date: 20110920
  Transmission Date: 20120403
  Serious: Yes (Hospitalization)
  Sender: FDA-Public Use
  Company Number: 2011HGS-002497

PATIENT
  Age: 30 Year
  Sex: Male
  Weight: 71.2147 kg

DRUGS (6)
  1. PLAQUENIL (HYDROXYCHLOROQUINE SULFATE) (HYDROXYCHLOROQUINE SULFATE) [Concomitant]
  2. TRAMADOL HCL [Concomitant]
  3. FLEXERIL (CYCLOBENZAPRINE HYDROCHLORIDE) (CYCLOBENZAPRINE HYDROCHLORID [Concomitant]
  4. LYRICA [Concomitant]
  5. BENLYSTA [Suspect]
     Indication: SYSTEMIC LUPUS ERYTHEMATOSUS
     Dosage: 10 MG/KG, 1 IN 14 D, INTRAVENOUS
     Route: 042
     Dates: start: 20110826, end: 20110826
  6. PREDNISONE [Concomitant]

REACTIONS (10)
  - DEPRESSION [None]
  - DEPRESSED MOOD [None]
  - DYSPNOEA [None]
  - NAUSEA [None]
  - OXYGEN SATURATION DECREASED [None]
  - HEADACHE [None]
  - ABDOMINAL PAIN [None]
  - CHEST PAIN [None]
  - CHEST DISCOMFORT [None]
  - BLOOD PRESSURE DECREASED [None]
